FAERS Safety Report 6140314-0 (Version None)
Quarter: 2009Q2

REPORT INFORMATION
  Report Type: 
  Country: None (occurrence: None)
  Receive Date: 20090401
  Receipt Date: 20090327
  Transmission Date: 20091009
  Serious: Yes (Death)
  Sender: FDA-Public Use
  Company Number: JP-ABBOTT-07P-087-0373685-00

PATIENT
  Sex: Female

DRUGS (6)
  1. KALETRA [Suspect]
     Indication: HIV INFECTION
     Route: 048
     Dates: start: 20010517, end: 20010613
  2. KALETRA [Suspect]
     Route: 048
     Dates: start: 20010621, end: 20061101
  3. KALETRA [Suspect]
     Indication: HIV INFECTION
     Dosage: 800MG/200MG
     Route: 048
     Dates: start: 20061102, end: 20070428
  4. EFAVIRENZ [Suspect]
     Indication: HIV INFECTION
     Route: 048
     Dates: start: 20010614, end: 20070428
  5. TEPRENONE [Concomitant]
     Indication: GASTRIC MUCOSAL LESION
     Route: 065
     Dates: start: 20070804
  6. TEPRENONE [Concomitant]
     Indication: PROPHYLAXIS

REACTIONS (4)
  - CYSTITIS [None]
  - DYSURIA [None]
  - GASTRIC CANCER [None]
  - LIVER DISORDER [None]
